FAERS Safety Report 19288922 (Version 4)
Quarter: 2021Q3

REPORT INFORMATION
  Report Type: Report from Study
  Country: US (occurrence: US)
  Receive Date: 20210521
  Receipt Date: 20210726
  Transmission Date: 20211014
  Serious: Yes (Hospitalization)
  Sender: FDA-Public Use
  Company Number: US-SEATTLE GENETICS-2021SGN02376

PATIENT
  Sex: Female

DRUGS (2)
  1. TUCATINIB [Suspect]
     Active Substance: TUCATINIB
     Indication: BREAST CANCER FEMALE
     Dosage: UNK
  2. TUCATINIB [Suspect]
     Active Substance: TUCATINIB
     Dosage: UNK

REACTIONS (8)
  - Adverse drug reaction [Unknown]
  - Hospitalisation [Unknown]
  - Diarrhoea [Unknown]
  - Catheter placement [Unknown]
  - Infection [Unknown]
  - Weight increased [Unknown]
  - Nausea [Unknown]
  - Vomiting [Unknown]
